FAERS Safety Report 24705255 (Version 1)
Quarter: 2024Q4

REPORT INFORMATION
  Report Type: Spontaneous
  Country: PL (occurrence: PL)
  Receive Date: 20241206
  Receipt Date: 20241206
  Transmission Date: 20250114
  Serious: Yes (Other)
  Sender: ACCORD
  Company Number: None

PATIENT
  Age: 74 Year
  Sex: Male
  Weight: 74 kg

DRUGS (4)
  1. OXALIPLATIN [Suspect]
     Active Substance: OXALIPLATIN
     Indication: Colon cancer
     Dosage: STRENGTH: 0.1/20 ML, ONGOING THERAPY
     Dates: start: 20200908
  2. FLUOROURACIL [Suspect]
     Active Substance: FLUOROURACIL
     Indication: Colon cancer
     Dosage: STRENGTH: 5.0/100 ML DOSE: 3040 DOSE UNIT UNKNOWN, ONGOING THERAPY
     Dates: start: 20200908
  3. AVASTIN [Concomitant]
     Active Substance: BEVACIZUMAB
     Indication: Colon cancer
     Dosage: VIAL CONTAINS 0.4, ONGOING THERAPY,
     Dates: start: 20200908
  4. LEVOLEUCOVORIN [Concomitant]
     Active Substance: LEVOLEUCOVORIN
     Indication: Colon cancer
     Dosage: STRENGTH: 0.2/4.0 ML, ONGOING THERAPY
     Dates: start: 20200908

REACTIONS (3)
  - Asthenia [Recovering/Resolving]
  - Pain [Recovering/Resolving]
  - Neutropenia [Recovering/Resolving]

NARRATIVE: CASE EVENT DATE: 20201123
